FAERS Safety Report 9670888 (Version 1)
Quarter: 2013Q4

REPORT INFORMATION
  Report Type: Spontaneous
  Country: US (occurrence: US)
  Receive Date: 20131106
  Receipt Date: 20131106
  Transmission Date: 20140711
  Serious: Yes (Other)
  Sender: FDA-Public Use
  Company Number: PHEH2013US022984

PATIENT
  Sex: Male

DRUGS (5)
  1. EXELON PATCH [Suspect]
     Dosage: 9.5 MG (PATCH 10 CM2), UNK
     Route: 062
  2. EXELON PATCH [Suspect]
     Dosage: 13.3 MG (PATCH 15 CM2), DAILY
     Route: 062
  3. EXELON PATCH [Suspect]
     Dosage: 9.5 MG (PATCH 10 CM2), DAILY
     Route: 062
  4. QUETIAPINE [Concomitant]
     Dosage: 100 MG, QD
  5. TAMSULOSIN HCL [Concomitant]
     Dosage: 4 MG, QD

REACTIONS (6)
  - Abnormal behaviour [Recovering/Resolving]
  - Nervousness [Unknown]
  - Mania [Unknown]
  - Insomnia [Recovering/Resolving]
  - Hallucination [Recovering/Resolving]
  - Incorrect dose administered [Unknown]
